FAERS Safety Report 22225815 (Version 2)
Quarter: 2023Q2

REPORT INFORMATION
  Report Type: Spontaneous
  Country: US (occurrence: US)
  Receive Date: 20230418
  Receipt Date: 20230525
  Transmission Date: 20230721
  Serious: Yes (Hospitalization)
  Sender: FDA-Public Use
  Company Number: US-BIOGEN-2023BI01199064

PATIENT
  Sex: Female

DRUGS (2)
  1. TECFIDERA [Suspect]
     Active Substance: DIMETHYL FUMARATE
     Indication: Product used for unknown indication
     Dosage: MAINTENANCE DOSE
     Route: 050
  2. CANNABIS SATIVA SUBSP. INDICA TOP [Suspect]
     Active Substance: CANNABIS SATIVA SUBSP. INDICA TOP
     Indication: Neck pain
     Dosage: GUMMIES
     Route: 050

REACTIONS (4)
  - Coma [Unknown]
  - Neck pain [Recovered/Resolved]
  - Pain in extremity [Recovered/Resolved]
  - Overdose [Unknown]
